FAERS Safety Report 10609018 (Version 1)
Quarter: 2014Q4

REPORT INFORMATION
  Report Type: Spontaneous
  Country: IT (occurrence: IT)
  Receive Date: 20141126
  Receipt Date: 20141126
  Transmission Date: 20150529
  Serious: Yes (Life-Threatening)
  Sender: FDA-Public Use
  Company Number: IT-ROCHE-1494907

PATIENT
  Age: 54 Year
  Sex: Male

DRUGS (1)
  1. RIVOTRIL [Suspect]
     Active Substance: CLONAZEPAM
     Indication: ANXIETY
     Dosage: 2.5 MG /ML GTT ORAL
     Route: 048
     Dates: start: 20140930, end: 20140930

REACTIONS (6)
  - Vertigo [Recovered/Resolved]
  - Drug abuse [Unknown]
  - Gait disturbance [Recovered/Resolved]
  - Repetitive speech [Recovered/Resolved]
  - Dizziness [Recovered/Resolved]
  - Electrocardiogram abnormal [Recovered/Resolved]

NARRATIVE: CASE EVENT DATE: 20141001
